FAERS Safety Report 4575815-X (Version None)
Quarter: 2005Q1

REPORT INFORMATION
  Report Type: 
  Country: None (occurrence: None)
  Receive Date: 20050127
  Receipt Date: 20040928
  Transmission Date: 20050727
  Serious: No
  Sender: FDA-Public Use
  Company Number: USA040979778

PATIENT
  Age: 48 Year
  Sex: Female

DRUGS (6)
  1. STRATTERA [Suspect]
     Indication: ATTENTION DEFICIT/HYPERACTIVITY DISORDER
     Dosage: 40 MG AS NEEDED
     Dates: start: 20040101
  2. ZYPREXA [Concomitant]
  3. NEURONTIN (GABAPENTIN PFIZER) [Concomitant]
  4. TENEX [Concomitant]
  5. TRILEPTAL [Concomitant]
  6. LAMICTAL [Concomitant]

REACTIONS (1)
  - RESTLESS LEGS SYNDROME [None]
